FAERS Safety Report 18766785 (Version 1)
Quarter: 2021Q1

REPORT INFORMATION
  Report Type: Spontaneous
  Country: GB (occurrence: GB)
  Receive Date: 20210121
  Receipt Date: 20210121
  Transmission Date: 20210419
  Serious: Yes (Other)
  Sender: FDA-Public Use
  Company Number: GB-ALKEM LABORATORIES LIMITED-GB-ALKEM-2020-07384

PATIENT

DRUGS (1)
  1. AZATHIOPRINE. [Suspect]
     Active Substance: AZATHIOPRINE
     Indication: RASMUSSEN ENCEPHALITIS
     Dosage: 1.5 MILLIGRAM/KILOGRAM, QD
     Route: 048

REACTIONS (1)
  - Lower respiratory tract infection [Unknown]
